FAERS Safety Report 8542050-X (Version None)
Quarter: 2012Q3

REPORT INFORMATION
  Report Type: 
  Country: None (occurrence: None)
  Receive Date: 20120726
  Receipt Date: 20110927
  Transmission Date: 20120928
  Serious: No
  Sender: FDA-Public Use
  Company Number: US-ASTRAZENECA-2011SE58016

PATIENT
  Age: 57 Year
  Sex: Female
  Weight: 113.4 kg

DRUGS (2)
  1. FLUOXETINE HCL [Concomitant]
  2. SEROQUEL XR [Suspect]
     Indication: BIPOLAR DISORDER
     Route: 048
     Dates: start: 20090101

REACTIONS (5)
  - ACTIVITIES OF DAILY LIVING IMPAIRED [None]
  - DRUG DOSE OMISSION [None]
  - INSOMNIA [None]
  - APHAGIA [None]
  - DEPRESSION [None]
